FAERS Safety Report 14569431 (Version 1)
Quarter: 2018Q1

REPORT INFORMATION
  Report Type: Report from Study
  Country: US (occurrence: US)
  Receive Date: 20180223
  Receipt Date: 20180223
  Transmission Date: 20180509
  Serious: Yes (Other)
  Sender: FDA-Public Use
  Company Number: US-GILEAD-2018-0321741

PATIENT
  Age: 69 Year
  Sex: Female

DRUGS (2)
  1. RANOLAZINE. [Suspect]
     Active Substance: RANOLAZINE
     Indication: ANGINA PECTORIS
     Dosage: 500 MG, UNK
     Route: 048
     Dates: start: 201801
  2. RANOLAZINE. [Suspect]
     Active Substance: RANOLAZINE
     Dosage: 1000 UNK, UNK
     Route: 048
     Dates: start: 201703

REACTIONS (3)
  - Intentional product use issue [Recovered/Resolved]
  - Inappropriate schedule of drug administration [Unknown]
  - Cataract [Unknown]
